FAERS Safety Report 11784682 (Version 1)
Quarter: 2015Q4

REPORT INFORMATION
  Report Type: Spontaneous
  Country: US (occurrence: US)
  Receive Date: 20151130
  Receipt Date: 20151130
  Transmission Date: 20160305
  Serious: Yes (Other)
  Sender: FDA-Public Use
  Company Number: US-AMGEN-USASP2015125328

PATIENT
  Age: 70 Year
  Sex: Female

DRUGS (4)
  1. BENICAR [Concomitant]
     Active Substance: OLMESARTAN MEDOXOMIL
     Indication: BLOOD PRESSURE ABNORMAL
  2. PROLIA [Suspect]
     Active Substance: DENOSUMAB
     Indication: OSTEOPOROSIS POSTMENOPAUSAL
     Dosage: UNK
     Route: 065
  3. CRESTOR [Concomitant]
     Active Substance: ROSUVASTATIN CALCIUM
     Dosage: 20 MG, QD
  4. MELOXICAM. [Concomitant]
     Active Substance: MELOXICAM
     Dosage: ONCE EVERY 4 TO 5 DAYS

REACTIONS (4)
  - Loose tooth [Unknown]
  - Foot fracture [Unknown]
  - Device breakage [Unknown]
  - Stress fracture [Unknown]

NARRATIVE: CASE EVENT DATE: 201510
